FAERS Safety Report 7764127-9 (Version None)
Quarter: 2011Q3

REPORT INFORMATION
  Report Type: 
  Country: None (occurrence: None)
  Receive Date: 20110921
  Receipt Date: 20110915
  Transmission Date: 20111222
  Serious: Yes (Death)
  Sender: FDA-Public Use
  Company Number: US-US-EMD SERONO, INC.-7082003

PATIENT
  Sex: Male

DRUGS (12)
  1. EGRIFTA [Suspect]
     Indication: LIPODYSTROPHY ACQUIRED
     Route: 058
  2. COREG [Concomitant]
     Route: 048
  3. LISINOPRIL [Concomitant]
     Route: 048
  4. SPIRONOLACTONE [Concomitant]
     Route: 048
  5. LASIX [Concomitant]
  6. SEROSTIM [Concomitant]
     Route: 058
  7. LEXIVA [Concomitant]
     Route: 048
  8. TRIZIVIR (ABACAVIR SULFATE, LAMIVUDINE, AND ZIDOVUDINE) [Concomitant]
     Route: 048
  9. FLOMAX [Concomitant]
  10. CRESTOR [Concomitant]
     Route: 048
  11. OXANDRIN [Concomitant]
     Route: 048
  12. WELLBUTRIN SR [Concomitant]
     Route: 048

REACTIONS (1)
  - MYOCARDIAL INFARCTION [None]
